FAERS Safety Report 20015517 (Version 1)
Quarter: 2021Q4

REPORT INFORMATION
  Report Type: Spontaneous
  Country: US (occurrence: None)
  Receive Date: 20211101
  Receipt Date: 20211101
  Transmission Date: 20220303
  Serious: Yes (Life-Threatening, Disabling, Other)
  Sender: FDA-Public Use
  Company Number: None

PATIENT
  Age: 36 Year
  Sex: Male
  Weight: 94.5 kg

DRUGS (1)
  1. DEXTROAMPHET SACCHARAT, AMPHET ASPARTATE, DEXTROAMPHET SULFATE AND AMP [Suspect]
     Active Substance: AMPHETAMINE ASPARTATE\AMPHETAMINE SULFATE\DEXTROAMPHETAMINE SACCHARATE\DEXTROAMPHETAMINE SULFATE
     Indication: Attention deficit hyperactivity disorder
     Dosage: FREQUENCY : EVERY 8 HOURS;?
     Route: 048
     Dates: start: 20211011, end: 20211031

REACTIONS (9)
  - Manufacturing issue [None]
  - Feeling abnormal [None]
  - Thinking abnormal [None]
  - Disturbance in attention [None]
  - Psychomotor hyperactivity [None]
  - Condition aggravated [None]
  - Impulse-control disorder [None]
  - Drug ineffective [None]
  - Quality of life decreased [None]

NARRATIVE: CASE EVENT DATE: 20211011
